FAERS Safety Report 5154706-X (Version None)
Quarter: 2006Q4

REPORT INFORMATION
  Report Type: 
  Country: None (occurrence: None)
  Receive Date: 20061116
  Receipt Date: 20061116
  Transmission Date: 20070319
  Serious: Yes (Hospitalization)
  Sender: FDA-Public Use
  Company Number: None

PATIENT
  Age: 55 Year
  Sex: Male
  Weight: 74 kg

DRUGS (4)
  1. PAROXETINE [Suspect]
     Indication: DEPRESSION
     Dosage: 2 TABS HS
     Dates: start: 20000101, end: 20060101
  2. TRAZODONE HCL [Suspect]
     Indication: SLEEP DISORDER
     Dosage: 1-2 TABS HS
     Dates: start: 20000101, end: 20060101
  3. MS CONTIN [Suspect]
     Dosage: 30 MG BID
  4. MSO4 IR [Suspect]
     Dosage: 15 MG QID
     Dates: start: 20000101, end: 20060101

REACTIONS (12)
  - AGGRESSION [None]
  - ANURIA [None]
  - ARTHROPOD BITE [None]
  - ENCEPHALITIS HERPES [None]
  - MENTAL STATUS CHANGES [None]
  - MUSCLE TWITCHING [None]
  - MYOCLONUS [None]
  - OPIATES POSITIVE [None]
  - PAIN [None]
  - RENAL FAILURE ACUTE [None]
  - SEROTONIN SYNDROME [None]
  - TREMOR [None]
